FAERS Safety Report 5481366-0 (Version None)
Quarter: 2007Q4

REPORT INFORMATION
  Report Type: 
  Country: None (occurrence: None)
  Receive Date: 20071010
  Receipt Date: 20070927
  Transmission Date: 20080405
  Serious: Yes (Hospitalization)
  Sender: FDA-Public Use
  Company Number: AU-AVENTIS-200714551EU

PATIENT
  Age: 63 Year
  Sex: Female

DRUGS (1)
  1. RILUTEK [Suspect]
     Indication: MOTOR NEURONE DISEASE
     Dosage: DOSE: UNK
     Dates: end: 20070301

REACTIONS (3)
  - FATIGUE [None]
  - MULTIPLE FRACTURES [None]
  - NAUSEA [None]
